FAERS Safety Report 5635547-3 (Version None)
Quarter: 2008Q1

REPORT INFORMATION
  Report Type: 
  Country: None (occurrence: None)
  Receive Date: 20080222
  Receipt Date: 20080212
  Transmission Date: 20080703
  Serious: Yes (Other)
  Sender: FDA-Public Use
  Company Number: US-PFIZER INC-2008015227

PATIENT
  Sex: Female

DRUGS (1)
  1. CHANTIX [Suspect]

REACTIONS (6)
  - AMNESIA [None]
  - BIPOLAR DISORDER [None]
  - IRRITABILITY [None]
  - MOOD SWINGS [None]
  - SLEEP DISORDER [None]
  - SUICIDAL IDEATION [None]
